FAERS Safety Report 5216854-5 (Version None)
Quarter: 2007Q1

REPORT INFORMATION
  Report Type: 
  Country: None (occurrence: None)
  Receive Date: 20070119
  Receipt Date: 20070117
  Transmission Date: 20070707
  Serious: Yes (Other)
  Sender: FDA-Public Use
  Company Number: HQWYE422223OCT06

PATIENT
  Age: 82 Year
  Sex: Female

DRUGS (2)
  1. ADVIL PM [Suspect]
     Indication: INSOMNIA
     Dosage: ONE CAPLET AS NEEDED
     Dates: start: 20060801
  2. ADVIL PM [Suspect]
     Indication: PAIN IN EXTREMITY
     Dosage: ONE CAPLET AS NEEDED
     Dates: start: 20060801

REACTIONS (1)
  - MYOCARDIAL INFARCTION [None]
